FAERS Safety Report 4799862-8 (Version None)
Quarter: 2005Q4

REPORT INFORMATION
  Report Type: 
  Country: None (occurrence: None)
  Receive Date: 20051017
  Receipt Date: 20051004
  Transmission Date: 20060501
  Serious: Yes (Death)
  Sender: FDA-Public Use
  Company Number: US-BRISTOL-MYERS SQUIBB COMPANY-13142393

PATIENT
  Age: 45 Year

DRUGS (3)
  1. STAVUDINE [Suspect]
     Route: 048
  2. LAMIVUDINE [Suspect]
  3. GLIPIZIDE [Suspect]

REACTIONS (1)
  - DEATH [None]
